FAERS Safety Report 9683297 (Version 2)
Quarter: 2013Q4

REPORT INFORMATION
  Report Type: Spontaneous
  Country: US (occurrence: US)
  Receive Date: 20131112
  Receipt Date: 20131112
  Transmission Date: 20140711
  Serious: Yes (Hospitalization)
  Sender: FDA-Public Use
  Company Number: US-BAXTER-2013BAX000779

PATIENT
  Age: 21 Year
  Sex: Female

DRUGS (3)
  1. DIANEAL LOW CALCIUM [Suspect]
     Indication: PERITONEAL DIALYSIS
     Dosage: 5 FILLS OF 1700MLS AND LAST FILL OF 700
     Route: 033
  2. DIANEAL LOW CALCIUM (ULTRABAG) [Suspect]
     Indication: PERITONEAL DIALYSIS
     Dosage: 5 FILLS OF 1700MLS AND LAST FILL OF 700
     Route: 033
  3. DIANEAL LOW CALCIUM (ULTRABAG) [Suspect]
     Indication: PERITONEAL DIALYSIS
     Dosage: 5 FILLS OF 1700MLS AND LAST FILL OF 700
     Route: 033

REACTIONS (1)
  - Peritonitis bacterial [Not Recovered/Not Resolved]
